FAERS Safety Report 25091411 (Version 1)
Quarter: 2025Q1

REPORT INFORMATION
  Report Type: Spontaneous
  Country: US (occurrence: US)
  Receive Date: 20250318
  Receipt Date: 20250318
  Transmission Date: 20250409
  Serious: No
  Sender: SANOFI AVENTIS
  Company Number: US-SA-2025SA075438

PATIENT
  Age: 60 Year
  Sex: Male

DRUGS (2)
  1. DUPIXENT [Suspect]
     Active Substance: DUPILUMAB
     Indication: Chronic obstructive pulmonary disease
     Route: 058
     Dates: start: 20250226, end: 20250226
  2. DUPIXENT [Suspect]
     Active Substance: DUPILUMAB
     Dosage: 300MG
     Route: 058
     Dates: start: 2025

REACTIONS (5)
  - Cough [Unknown]
  - Chest discomfort [Unknown]
  - Dyspnoea [Unknown]
  - Asthenia [Unknown]
  - Secretion discharge [Unknown]

NARRATIVE: CASE EVENT DATE: 20250101
